FAERS Safety Report 7256853-5 (Version None)
Quarter: 2011Q1

REPORT INFORMATION
  Report Type: 
  Country: None (occurrence: None)
  Receive Date: 20110129
  Receipt Date: 20100707
  Transmission Date: 20110831
  Serious: No
  Sender: FDA-Public Use
  Company Number: US-ABBOTT-10P-163-0652475-00

PATIENT
  Sex: Female
  Weight: 99.88 kg

DRUGS (10)
  1. TEKTURNA [Concomitant]
     Indication: BLOOD PRESSURE
  2. SYNTHROID [Concomitant]
     Indication: PRODUCT USED FOR UNKNOWN INDICATION
  3. HUMIRA [Suspect]
     Indication: PSORIASIS
     Dates: start: 20100412
  4. HUMIRA [Suspect]
     Indication: OSTEOARTHRITIS
  5. METHOTREXATE [Concomitant]
     Indication: PSORIASIS
  6. PREVACID [Concomitant]
     Indication: PRODUCT USED FOR UNKNOWN INDICATION
  7. NORVASC [Concomitant]
     Indication: BLOOD PRESSURE
  8. BISOPROLOL [Concomitant]
     Indication: BLOOD PRESSURE
  9. M.V.I. [Concomitant]
     Indication: PRODUCT USED FOR UNKNOWN INDICATION
  10. VIT C [Concomitant]
     Indication: PRODUCT USED FOR UNKNOWN INDICATION

REACTIONS (2)
  - FATIGUE [None]
  - FEELING ABNORMAL [None]
